FAERS Safety Report 8962917 (Version 1)
Quarter: 2012Q4

REPORT INFORMATION
  Report Type: 
  Country: CA (occurrence: CA)
  Receive Date: 20121213
  Receipt Date: 20121213
  Transmission Date: 20130627
  Serious: Yes (Other)
  Sender: FDA-Public Use
  Company Number: CA-ROCHE-1166774

PATIENT
  Sex: Female

DRUGS (1)
  1. XOLAIR [Suspect]
     Indication: ASTHMA
     Route: 058
     Dates: start: 20080528

REACTIONS (6)
  - Blood pressure increased [Unknown]
  - Lower respiratory tract infection [Unknown]
  - Upper respiratory tract infection [Unknown]
  - Infection [Unknown]
  - Hypopnoea [Unknown]
  - Wheezing [Unknown]
